FAERS Safety Report 11595242 (Version 1)
Quarter: 2015Q4

REPORT INFORMATION
  Report Type: Spontaneous
  Country: GB (occurrence: GB)
  Receive Date: 20151006
  Receipt Date: 20151006
  Transmission Date: 20160304
  Serious: Yes (Life-Threatening, Hospitalization)
  Sender: FDA-Public Use
  Company Number: GB-ACCORD-034036

PATIENT
  Age: 87 Year
  Sex: Female

DRUGS (10)
  1. LEVOTHYROXINE. [Concomitant]
     Active Substance: LEVOTHYROXINE
  2. IRON [Concomitant]
     Active Substance: IRON
  3. LANSOPRAZOLE. [Concomitant]
     Active Substance: LANSOPRAZOLE
  4. METHOTREXATE [Suspect]
     Active Substance: METHOTREXATE
     Indication: RHEUMATOID ARTHRITIS
     Route: 048
  5. CYANOCOBALAMIN/CYANOCOBALAMIN ZINC TANNATE/CYANOCOBALAMIN-TANNIN COMPLEX [Concomitant]
  6. PARACETAMOL [Concomitant]
     Active Substance: ACETAMINOPHEN
  7. OXYBUTYNIN [Concomitant]
     Active Substance: OXYBUTYNIN
  8. FOLIC ACID. [Concomitant]
     Active Substance: FOLIC ACID
  9. SIMVASTATIN. [Concomitant]
     Active Substance: SIMVASTATIN
  10. WARFARIN [Concomitant]
     Active Substance: WARFARIN

REACTIONS (6)
  - Lethargy [Recovered/Resolved]
  - Hypophagia [Recovered/Resolved]
  - Abdominal discomfort [Recovered/Resolved]
  - Febrile neutropenia [Recovered/Resolved]
  - Pollakiuria [Recovered/Resolved]
  - Somnolence [Recovered/Resolved]
